FAERS Safety Report 10586452 (Version 1)
Quarter: 2014Q4

REPORT INFORMATION
  Report Type: Spontaneous
  Country: US (occurrence: US)
  Receive Date: 20141117
  Receipt Date: 20141117
  Transmission Date: 20150529
  Serious: Yes (Disabling)
  Sender: FDA-Public Use
  Company Number: US-UCBSA-2014017740

PATIENT
  Sex: Female

DRUGS (1)
  1. KEPPRA XR [Suspect]
     Active Substance: LEVETIRACETAM
     Indication: SEIZURE
     Dosage: 1500 MG, 2X/DAY (BID) (DOSE: 750MG 2 TAB BID)

REACTIONS (2)
  - Inappropriate schedule of drug administration [Unknown]
  - Generalised tonic-clonic seizure [Not Recovered/Not Resolved]
